FAERS Safety Report 6538368-2 (Version None)
Quarter: 2010Q1

REPORT INFORMATION
  Report Type: 
  Country: None (occurrence: None)
  Receive Date: 20100114
  Receipt Date: 20100104
  Transmission Date: 20100710
  Serious: No
  Sender: FDA-Public Use
  Company Number: US-B.I. PHARMACEUTICALS,INC./RIDGEFIELD-2010-BP-00141BP

PATIENT
  Age: 65 Year
  Sex: Female

DRUGS (1)
  1. ZANTAC 75 [Suspect]
     Indication: CHEST PAIN
     Dosage: 75 MG
     Route: 048
     Dates: start: 20100104

REACTIONS (1)
  - SWELLING FACE [None]
